FAERS Safety Report 10575281 (Version 4)
Quarter: 2015Q1

REPORT INFORMATION
  Report Type: Spontaneous
  Country: GB (occurrence: GB)
  Receive Date: 20141111
  Receipt Date: 20150303
  Transmission Date: 20150720
  Serious: Yes (Other)
  Sender: FDA-Public Use
  Company Number: GB-ROCHE-1488586

PATIENT
  Sex: Female

DRUGS (2)
  1. HERCEPTIN [Suspect]
     Active Substance: TRASTUZUMAB
     Indication: PRODUCT USED FOR UNKNOWN INDICATION
     Dosage: CYCLE 15 OF 17
     Route: 058
  2. HERCEPTIN [Suspect]
     Active Substance: TRASTUZUMAB
     Dosage: CYCLE 16 OF 17
     Route: 058

REACTIONS (15)
  - Arthralgia [Unknown]
  - Musculoskeletal chest pain [Unknown]
  - Asthenia [Unknown]
  - Neuropathy peripheral [Unknown]
  - Pain [Unknown]
  - Onychoclasis [Unknown]
  - Nail disorder [Unknown]
  - Anxiety [Unknown]
  - Depression [Unknown]
  - Hyperaesthesia [Unknown]
  - Skin fissures [Unknown]
  - Dry skin [Unknown]
  - Paraesthesia [Unknown]
  - Stomatitis [Unknown]
  - Sleep disorder [Unknown]
